FAERS Safety Report 21486121 (Version 2)
Quarter: 2022Q4

REPORT INFORMATION
  Report Type: Report from Study
  Country: CA (occurrence: CA)
  Receive Date: 20221020
  Receipt Date: 20221027
  Transmission Date: 20230113
  Serious: Yes (Other)
  Sender: FDA-Public Use
  Company Number: CA-JNJFOC-20220320366

PATIENT
  Age: 23 Year
  Sex: Female
  Weight: 53 kg

DRUGS (1)
  1. REMICADE [Suspect]
     Active Substance: INFLIXIMAB
     Indication: Crohn^s disease
     Dosage: START DATE ALSO REPORTED AS 06-DEC-2016, 16-DEC-2016 IN FOLLOW UP REPORT. EXPIRY DATE: 01-OCT-2024,
     Route: 042
     Dates: start: 20161201

REACTIONS (13)
  - Caesarean section [Recovering/Resolving]
  - Exposure during pregnancy [Recovered/Resolved]
  - Crohn^s disease [Unknown]
  - Viral infection [Recovering/Resolving]
  - COVID-19 [Unknown]
  - Precancerous cells present [Not Recovered/Not Resolved]
  - Peripheral swelling [Unknown]
  - Suppressed lactation [Unknown]
  - Gait disturbance [Unknown]
  - Dehydration [Unknown]
  - Arthralgia [Unknown]
  - Off label use [Unknown]
  - Inappropriate schedule of product administration [Unknown]

NARRATIVE: CASE EVENT DATE: 20161201
